FAERS Safety Report 7355011-3 (Version None)
Quarter: 2011Q1

REPORT INFORMATION
  Report Type: 
  Country: None (occurrence: None)
  Receive Date: 20110316
  Receipt Date: 20110225
  Transmission Date: 20110831
  Serious: Yes (Hospitalization, Other)
  Sender: FDA-Public Use
  Company Number: BR-US-EMD SERONO, INC.-7037000

PATIENT
  Sex: Male

DRUGS (3)
  1. BACLOFEN [Concomitant]
  2. REBIF [Suspect]
     Indication: RELAPSING-REMITTING MULTIPLE SCLEROSIS
     Dates: start: 20080821
  3. DIAZEPAM [Concomitant]

REACTIONS (5)
  - COUGH [None]
  - QUADRIPLEGIA [None]
  - ESCHAR [None]
  - ANAEMIA [None]
  - PYREXIA [None]
